FAERS Safety Report 16100228 (Version 1)
Quarter: 2019Q1

REPORT INFORMATION
  Report Type: Spontaneous
  Country: US (occurrence: US)
  Receive Date: 20190321
  Receipt Date: 20190321
  Transmission Date: 20190418
  Serious: No
  Sender: FDA-Public Use
  Company Number: US-B.I. PHARMACEUTICALS,INC./RIDGEFIELD-2019-BI-011263

PATIENT

DRUGS (22)
  1. CELEBREX [Concomitant]
     Active Substance: CELECOXIB
     Indication: ARTHRALGIA
  2. NEURONTIN [Concomitant]
     Active Substance: GABAPENTIN
     Indication: SPINAL FUSION SURGERY
  3. NEURONTIN [Concomitant]
     Active Substance: GABAPENTIN
     Indication: SCIATICA
  4. LYRICA [Concomitant]
     Active Substance: PREGABALIN
     Indication: SCIATICA
  5. CELEBREX [Concomitant]
     Active Substance: CELECOXIB
     Indication: SCIATICA
  6. NEURONTIN [Concomitant]
     Active Substance: GABAPENTIN
     Indication: ARTHRITIS
  7. MOBIC [Suspect]
     Active Substance: MELOXICAM
     Indication: PRODUCT USED FOR UNKNOWN INDICATION
     Route: 065
  8. LYRICA [Concomitant]
     Active Substance: PREGABALIN
     Indication: ARTHRITIS
  9. LYRICA [Concomitant]
     Active Substance: PREGABALIN
     Indication: NEUROPATHY PERIPHERAL
  10. LYRICA [Concomitant]
     Active Substance: PREGABALIN
     Indication: ARTHRALGIA
  11. CELEBREX [Concomitant]
     Active Substance: CELECOXIB
     Indication: NEUROPATHY PERIPHERAL
  12. CELEBREX [Concomitant]
     Active Substance: CELECOXIB
     Indication: SPINAL FUSION SURGERY
  13. CELEBREX [Concomitant]
     Active Substance: CELECOXIB
     Indication: ARTHRITIS
  14. CELEBREX [Concomitant]
     Active Substance: CELECOXIB
     Indication: BACK PAIN
  15. NEURONTIN [Concomitant]
     Active Substance: GABAPENTIN
     Indication: PAIN
     Route: 048
  16. NEURONTIN [Concomitant]
     Active Substance: GABAPENTIN
     Indication: ARTHRALGIA
  17. LYRICA [Concomitant]
     Active Substance: PREGABALIN
     Indication: SPINAL FUSION SURGERY
  18. CELEBREX [Concomitant]
     Active Substance: CELECOXIB
     Indication: PAIN
     Route: 048
  19. NEURONTIN [Concomitant]
     Active Substance: GABAPENTIN
     Indication: NEUROPATHY PERIPHERAL
  20. LYRICA [Concomitant]
     Active Substance: PREGABALIN
     Indication: BACK PAIN
  21. NEURONTIN [Concomitant]
     Active Substance: GABAPENTIN
     Indication: BACK PAIN
  22. LYRICA [Concomitant]
     Active Substance: PREGABALIN
     Indication: PAIN
     Route: 048

REACTIONS (1)
  - Drug ineffective [Unknown]
